FAERS Safety Report 9501437 (Version 3)
Quarter: 2013Q4

REPORT INFORMATION
  Report Type: Spontaneous
  Country: US (occurrence: US)
  Receive Date: 20130905
  Receipt Date: 20131003
  Transmission Date: 20140711
  Serious: Yes (Death)
  Sender: FDA-Public Use
  Company Number: US-GLAXOSMITHKLINE-A1040166A

PATIENT
  Sex: Female

DRUGS (1)
  1. ARIXTRA [Suspect]
     Indication: PHLEBITIS
     Route: 065
     Dates: start: 20120907

REACTIONS (1)
  - Pancreatic disorder [Fatal]
